FAERS Safety Report 10156964 (Version 1)
Quarter: 2014Q2

REPORT INFORMATION
  Report Type: Report from Study
  Country: NO (occurrence: NO)
  Receive Date: 20140507
  Receipt Date: 20140507
  Transmission Date: 20141212
  Serious: Yes (Hospitalization)
  Sender: FDA-Public Use
  Company Number: NO-MERCK-1405NOR001656

PATIENT
  Age: 33 Year
  Sex: Female

DRUGS (2)
  1. PEGINTERFERON ALFA-2B [Suspect]
     Indication: MYELOID LEUKAEMIA
     Dosage: 15 MICROGRAM, QW
     Route: 058
  2. DASATINIB [Suspect]
     Indication: MYELOID LEUKAEMIA
     Dosage: 100 MG, QD
     Route: 048

REACTIONS (2)
  - Cerebrospinal fluid leakage [Unknown]
  - Headache [Recovered/Resolved]
